FAERS Safety Report 17005372 (Version 1)
Quarter: 2019Q4

REPORT INFORMATION
  Report Type: Spontaneous
  Country: CA (occurrence: CA)
  Receive Date: 20191107
  Receipt Date: 20191107
  Transmission Date: 20200122
  Serious: Yes (Other)
  Sender: FDA-Public Use
  Company Number: CA-PFIZER INC-2019471467

PATIENT
  Sex: Female

DRUGS (2)
  1. EFFEXOR [Suspect]
     Active Substance: VENLAFAXINE HYDROCHLORIDE
     Indication: ANXIETY
     Dosage: UNK
     Dates: start: 2016
  2. EFFEXOR [Suspect]
     Active Substance: VENLAFAXINE HYDROCHLORIDE
     Indication: PANIC DISORDER

REACTIONS (5)
  - Theft [Unknown]
  - Depression [Unknown]
  - Gambling disorder [Unknown]
  - Social avoidant behaviour [Unknown]
  - Loss of employment [Unknown]
